FAERS Safety Report 20753029 (Version 1)
Quarter: 2022Q2

REPORT INFORMATION
  Report Type: Spontaneous
  Country: US (occurrence: None)
  Receive Date: 20220426
  Receipt Date: 20220426
  Transmission Date: 20220721
  Serious: No
  Sender: FDA-Public Use
  Company Number: US-ROCHE-2988131

PATIENT
  Age: 82 Year
  Sex: Male

DRUGS (6)
  1. ESBRIET [Suspect]
     Active Substance: PIRFENIDONE
     Indication: Pulmonary fibrosis
     Route: 048
     Dates: start: 202101, end: 202112
  2. PROBIOTIC (UNK INGREDIENTS) [Concomitant]
  3. ROSUVASTATIN [Concomitant]
     Active Substance: ROSUVASTATIN
  4. CELECOXIB [Concomitant]
     Active Substance: CELECOXIB
  5. BENZONATATE [Concomitant]
     Active Substance: BENZONATATE
  6. FLOVENT HFA [Concomitant]
     Active Substance: FLUTICASONE PROPIONATE
     Route: 055

REACTIONS (4)
  - Photosensitivity reaction [Unknown]
  - Respiratory disorder [Unknown]
  - Total lung capacity decreased [Unknown]
  - Drug ineffective [Unknown]

NARRATIVE: CASE EVENT DATE: 20210317
